FAERS Safety Report 6823136-4 (Version None)
Quarter: 2010Q3

REPORT INFORMATION
  Report Type: 
  Country: None (occurrence: None)
  Receive Date: 20100708
  Receipt Date: 20100630
  Transmission Date: 20110219
  Serious: Yes (Other)
  Sender: FDA-Public Use
  Company Number: CA-BRISTOL-MYERS SQUIBB COMPANY-15178023

PATIENT
  Age: 50 Year
  Sex: Female

DRUGS (8)
  1. ORENCIA [Suspect]
     Indication: RHEUMATOID ARTHRITIS
     Dosage: LAST DOSE:30JUN10,NO OF INF:18.
     Route: 042
     Dates: start: 20090402
  2. METHOTREXATE [Concomitant]
  3. PREDNISONE [Concomitant]
  4. CELEBREX [Concomitant]
  5. SINGULAIR [Concomitant]
  6. ACETAMINOPHEN [Concomitant]
  7. MAXALT [Concomitant]
  8. NEXIUM [Concomitant]

REACTIONS (1)
  - ASTHMA [None]
